FAERS Safety Report 7446863-7 (Version None)
Quarter: 2011Q2

REPORT INFORMATION
  Report Type: 
  Country: None (occurrence: None)
  Receive Date: 20110429
  Receipt Date: 20110425
  Transmission Date: 20111010
  Serious: Yes (Other)
  Sender: FDA-Public Use
  Company Number: US-PFIZER INC-2011057220

PATIENT
  Sex: Male
  Weight: 180.68 kg

DRUGS (4)
  1. HYDROCHLOROTHIAZIDE [Suspect]
     Dosage: 25 MG, 1X/DAY
  2. NEBIVOLOL [Suspect]
     Dosage: 10 MG, 1X/DAY
  3. NORVASC [Suspect]
     Indication: HYPERTENSION
     Dosage: UNK, DAILY
     Route: 048
     Dates: start: 20110201
  4. PHENTERMINE [Suspect]
     Dosage: 37.5 MG, 2X/DAY

REACTIONS (6)
  - OEDEMA PERIPHERAL [None]
  - CATARACT [None]
  - PAIN IN EXTREMITY [None]
  - GOUT [None]
  - BLINDNESS UNILATERAL [None]
  - WHITE BLOOD CELL COUNT INCREASED [None]
